FAERS Safety Report 14658959 (Version 1)
Quarter: 2018Q1

REPORT INFORMATION
  Report Type: Spontaneous
  Country: US (occurrence: US)
  Receive Date: 20180320
  Receipt Date: 20180320
  Transmission Date: 20180509
  Serious: No
  Sender: FDA-Public Use
  Company Number: US-009507513-1609USA007271

PATIENT
  Age: 57 Year
  Sex: Male

DRUGS (13)
  1. INTRON A [Suspect]
     Active Substance: INTERFERON ALFA-2B
     Indication: EVIDENCE BASED TREATMENT
  2. TACROLIMUS. [Concomitant]
     Active Substance: TACROLIMUS
     Indication: IMMUNOSUPPRESSANT DRUG THERAPY
     Dosage: 4 MG, QD
  3. TACROLIMUS. [Concomitant]
     Active Substance: TACROLIMUS
     Dosage: WAS DECREASED
  4. MYCOPHENOLATE MOFETIL. [Concomitant]
     Active Substance: MYCOPHENOLATE MOFETIL
     Dosage: WAS DECREASED
  5. INTRON A [Suspect]
     Active Substance: INTERFERON ALFA-2B
     Indication: ST. LOUIS ENCEPHALITIS
     Dosage: UNK
     Dates: start: 2015
  6. INTRON A [Suspect]
     Active Substance: INTERFERON ALFA-2B
     Indication: WEST NILE VIRAL INFECTION
  7. GLOBULIN, IMMUNE [Concomitant]
     Active Substance: HUMAN IMMUNOGLOBULIN G
     Indication: ST. LOUIS ENCEPHALITIS
     Dosage: UNK
     Route: 042
  8. TACROLIMUS. [Concomitant]
     Active Substance: TACROLIMUS
     Dosage: 3.5 MG, QD
  9. MYCOPHENOLATE MOFETIL. [Concomitant]
     Active Substance: MYCOPHENOLATE MOFETIL
     Indication: IMMUNOSUPPRESSANT DRUG THERAPY
     Dosage: 750 MG, BID
  10. PREDNISONE. [Concomitant]
     Active Substance: PREDNISONE
     Indication: IMMUNOSUPPRESSANT DRUG THERAPY
     Dosage: 5 MG, QD
  11. GLOBULIN, IMMUNE [Concomitant]
     Active Substance: HUMAN IMMUNOGLOBULIN G
     Indication: WEST NILE VIRAL INFECTION
  12. PREDNISONE. [Concomitant]
     Active Substance: PREDNISONE
     Dosage: WAS DECREASED
  13. GLOBULIN, IMMUNE [Concomitant]
     Active Substance: HUMAN IMMUNOGLOBULIN G
     Indication: EVIDENCE BASED TREATMENT

REACTIONS (1)
  - Off label use [Unknown]

NARRATIVE: CASE EVENT DATE: 2015
